FAERS Safety Report 23485761 (Version 1)
Quarter: 2024Q1

REPORT INFORMATION
  Report Type: Report from Study
  Country: US (occurrence: US)
  Receive Date: 20240206
  Receipt Date: 20240206
  Transmission Date: 20240409
  Serious: No
  Sender: FDA-Public Use
  Company Number: US-ORG100014127-2023000223

PATIENT
  Age: 57 Year
  Sex: Female

DRUGS (10)
  1. LYSODREN [Suspect]
     Active Substance: MITOTANE
     Indication: Adrenal gland cancer
     Dosage: TAKE 2 TABLETS BY MOUTH THREE TIMES DAILY
     Route: 048
     Dates: start: 20230203
  2. LYSODREN [Suspect]
     Active Substance: MITOTANE
     Indication: Adrenal gland cancer
     Dosage: TAKE 5 TABLETS BY MOUTH EVERY MORNING AND 5 TABLETS EVERY EVENING
     Route: 048
     Dates: start: 2023
  3. LYSODREN [Suspect]
     Active Substance: MITOTANE
     Indication: Adrenal gland cancer
     Dosage: TAKE 4 TABLETS BY MOUTH TWO TIMES DAILY
     Route: 048
  4. Calcium tablet 600 mg [Concomitant]
     Indication: Product used for unknown indication
     Route: 048
  5. Vitamin D cap 1000 Unit [Concomitant]
     Indication: Product used for unknown indication
     Route: 048
  6. Hydrocort tab 10mg [Concomitant]
     Indication: Product used for unknown indication
     Route: 048
  7. IBUPROFEN [Concomitant]
     Active Substance: IBUPROFEN
     Indication: Product used for unknown indication
     Route: 048
  8. SOLU-CORTEF [Concomitant]
     Active Substance: HYDROCORTISONE SODIUM SUCCINATE
     Indication: Product used for unknown indication
     Route: 048
  9. Oxybutynin tablet 5mg [Concomitant]
     Indication: Product used for unknown indication
  10. SOLU-CORTEF Injection [Concomitant]
     Indication: Product used for unknown indication

REACTIONS (6)
  - Balance disorder [Not Recovered/Not Resolved]
  - Fatigue [Not Recovered/Not Resolved]
  - Decreased appetite [Not Recovered/Not Resolved]
  - Nausea [Not Recovered/Not Resolved]
  - Dizziness [Not Recovered/Not Resolved]
  - Headache [Not Recovered/Not Resolved]

NARRATIVE: CASE EVENT DATE: 20230301
